FAERS Safety Report 19703999 (Version 1)
Quarter: 2021Q3

REPORT INFORMATION
  Report Type: Spontaneous
  Country: CN (occurrence: CN)
  Receive Date: 20210816
  Receipt Date: 20210816
  Transmission Date: 20211014
  Serious: Yes (Other)
  Sender: FDA-Public Use
  Company Number: CN-009507513-2108CHN002766

PATIENT
  Age: 46 Year
  Sex: Male
  Weight: 75 kg

DRUGS (2)
  1. SODIUM CHLORIDE. [Concomitant]
     Active Substance: SODIUM CHLORIDE
     Indication: VEHICLE SOLUTION USE
     Dosage: 200 MILLILITER (ALSO REPORTED AS MICROLITER), Q8H
     Route: 041
     Dates: start: 20210723, end: 20210728
  2. TIENAM [Suspect]
     Active Substance: CILASTATIN SODIUM\IMIPENEM
     Indication: PNEUMONIA
     Dosage: 1 GRAM, EVERY 8 HOURS (Q8H)
     Route: 041
     Dates: start: 20210723, end: 20210728

REACTIONS (5)
  - Altered state of consciousness [Not Recovered/Not Resolved]
  - Subacute hepatic failure [Unknown]
  - Unresponsive to stimuli [Unknown]
  - Drug eruption [Not Recovered/Not Resolved]
  - Cardio-respiratory arrest [Not Recovered/Not Resolved]

NARRATIVE: CASE EVENT DATE: 202107
